FAERS Safety Report 11328122 (Version 2)
Quarter: 2015Q4

REPORT INFORMATION
  Report Type: Spontaneous
  Country: FR (occurrence: FR)
  Receive Date: 20150731
  Receipt Date: 20151218
  Transmission Date: 20160304
  Serious: Yes (Hospitalization)
  Sender: FDA-Public Use
  Company Number: FR-FRESENIUS KABI-FK201503689

PATIENT
  Age: 29 Year
  Sex: Male

DRUGS (6)
  1. AZANTAC [Concomitant]
     Active Substance: RANITIDINE HYDROCHLORIDE
  2. PAMIDRONATE DE SODIUM [Suspect]
     Active Substance: PAMIDRONATE DISODIUM
     Indication: HYPERCALCAEMIA
     Route: 042
     Dates: start: 20150629
  3. KYTRIL [Concomitant]
     Active Substance: GRANISETRON HYDROCHLORIDE
  4. SOLU-MEDROL [Concomitant]
     Active Substance: METHYLPREDNISOLONE SODIUM SUCCINATE
  5. PACLITAXEL 6MG/ML CONCENTRATE FOR SOLUTION FOR INFUSION [Suspect]
     Active Substance: PACLITAXEL
     Indication: SQUAMOUS CELL CARCINOMA
     Route: 042
     Dates: start: 20150629
  6. POLARAMINE [Concomitant]
     Active Substance: DEXCHLORPHENIRAMINE MALEATE

REACTIONS (4)
  - Bronchospasm [Recovered/Resolved]
  - Discomfort [Recovered/Resolved]
  - Oxygen saturation decreased [Recovered/Resolved]
  - Blood pressure decreased [Recovered/Resolved]

NARRATIVE: CASE EVENT DATE: 20150629
